FAERS Safety Report 6302173-2 (Version None)
Quarter: 2009Q3

REPORT INFORMATION
  Report Type: 
  Country: None (occurrence: None)
  Receive Date: 20090809
  Receipt Date: 20090803
  Transmission Date: 20100115
  Serious: Yes (Hospitalization, Other)
  Sender: FDA-Public Use
  Company Number: US-ALLERGAN-0902509US

PATIENT
  Age: 5 Year
  Sex: Male
  Weight: 20 kg

DRUGS (12)
  1. BOTOX [Suspect]
     Indication: MUSCLE SPASTICITY
     Dosage: 200 UNITS (50 UNITS X 4), SINGLE
     Route: 030
     Dates: start: 20081217, end: 20081217
  2. BOTOX [Suspect]
     Indication: HYPERTONIA
  3. CLONIDINE [Concomitant]
     Dosage: HALF PATCH, Q3D
     Dates: start: 20081223
  4. METHADONE [Concomitant]
     Dosage: 52 MG, UNK
     Route: 050
  5. METHADONE [Concomitant]
     Dosage: 36 MG, UNK
     Route: 050
  6. MIRALAX [Concomitant]
     Indication: CONSTIPATION
     Dosage: UNK, BID
     Route: 050
  7. ENEMA [Concomitant]
     Indication: CONSTIPATION
     Dosage: 3 TIMES IN 3 MONTHS
  8. ATIVAN [Concomitant]
     Route: 050
  9. PREVACID [Concomitant]
     Route: 050
  10. KEPPRA [Concomitant]
     Route: 050
  11. MORPHINE [Concomitant]
     Dosage: UNK, SINGLE
     Route: 048
     Dates: start: 20081217, end: 20081217
  12. PAIN EEZ [Concomitant]
     Dosage: UNK, UNK
     Route: 061
     Dates: start: 20081217, end: 20081217

REACTIONS (12)
  - APNOEA [None]
  - AREFLEXIA [None]
  - ASTHENIA [None]
  - BULBAR PALSY [None]
  - CONSTIPATION [None]
  - DROOLING [None]
  - DYSPHAGIA [None]
  - HEART RATE INCREASED [None]
  - MUSCULAR WEAKNESS [None]
  - OVERDOSE [None]
  - TRACHEITIS [None]
  - VOCAL CORD DISORDER [None]
